FAERS Safety Report 24362236 (Version 2)
Quarter: 2024Q4

REPORT INFORMATION
  Report Type: Report from Study
  Country: US (occurrence: US)
  Receive Date: 20240925
  Receipt Date: 20241111
  Transmission Date: 20250114
  Serious: No
  Sender: BIOVITRUM
  Company Number: US-BIOVITRUM-2024-US-007212

PATIENT
  Age: 61 Year
  Sex: Female

DRUGS (1)
  1. KINERET [Suspect]
     Active Substance: ANAKINRA
     Indication: Product used for unknown indication
     Dosage: 100 MG, QF
     Route: 058

REACTIONS (5)
  - Product dose omission issue [Unknown]
  - Ill-defined disorder [Unknown]
  - Varicose vein [Unknown]
  - Cellulitis [Unknown]
  - Skin disorder [Unknown]
